FAERS Safety Report 19519634 (Version 1)
Quarter: 2021Q3

REPORT INFORMATION
  Report Type: Spontaneous
  Country: FR (occurrence: FR)
  Receive Date: 20210712
  Receipt Date: 20210712
  Transmission Date: 20211014
  Serious: Yes (Life-Threatening, Disabling)
  Sender: FDA-Public Use
  Company Number: FR-ACCORD-231311

PATIENT
  Age: 54 Year
  Sex: Female
  Weight: 48.5 kg

DRUGS (6)
  1. PACLITAXEL/PACLITAXEL LIPOSOME [Suspect]
     Active Substance: PACLITAXEL
     Indication: INVASIVE DUCTAL BREAST CARCINOMA
     Dosage: PACLITAXEL 102 MG
     Route: 041
     Dates: start: 20210525, end: 20210525
  2. ALIZAPRIDE [Concomitant]
     Active Substance: ALIZAPRIDE
     Dosage: SOLUTION FOR INJECTION
  3. METHYLPREDNISOLONE. [Concomitant]
     Active Substance: METHYLPREDNISOLONE
  4. POLARAMINE [Concomitant]
     Active Substance: DEXCHLORPHENIRAMINE MALEATE
     Dosage: 5 MG / 1 ML, SOLUTION FOR INJECTION
  5. PERTUZUMAB. [Concomitant]
     Active Substance: PERTUZUMAB
  6. TRASTUZUMAB. [Concomitant]
     Active Substance: TRASTUZUMAB

REACTIONS (3)
  - Angioedema [Recovered/Resolved]
  - Tremor [Recovered/Resolved]
  - Dyspnoea [Recovered/Resolved]

NARRATIVE: CASE EVENT DATE: 20210525
